FAERS Safety Report 9388239 (Version 3)
Quarter: 2014Q1

REPORT INFORMATION
  Report Type: Spontaneous
  Country: US (occurrence: US)
  Receive Date: 20130708
  Receipt Date: 20140206
  Transmission Date: 20141002
  Serious: No
  Sender: FDA-Public Use
  Company Number: US-PFIZER INC-2013198812

PATIENT
  Age: 65 Year
  Sex: Female
  Weight: 62.1 kg

DRUGS (10)
  1. ESTRING [Suspect]
     Indication: VULVOVAGINAL DRYNESS
     Dosage: 2 MG, UNK
     Route: 067
     Dates: start: 2000, end: 20130628
  2. ESTRING [Suspect]
     Indication: CYSTITIS INTERSTITIAL
     Dosage: 2 MG, UNK
     Route: 067
  3. LOVASTATIN [Concomitant]
     Indication: BLOOD CHOLESTEROL INCREASED
     Dosage: 20 UNK, 1X/DAY
  4. COZAAR [Concomitant]
     Indication: HYPERTENSION
     Dosage: UNK
  5. TOPIRAMATE [Concomitant]
     Dosage: 25 MG, 2X/DAY
  6. SYNTHROID [Concomitant]
     Dosage: 88 MG, 1X/DAY
  7. SINGULAIR [Concomitant]
     Dosage: 10 MG, 1X/DAY
  8. ASTELIN [Concomitant]
     Dosage: 137 UG, UNK
  9. NADOLOL [Concomitant]
     Dosage: 20 UNK, 1X/DAY
  10. OMEPRAZOLE [Concomitant]
     Dosage: 40 UNK,1X/DAY

REACTIONS (3)
  - Suspected counterfeit product [Recovered/Resolved]
  - Urticaria [Recovered/Resolved]
  - Vulvovaginal pain [Recovered/Resolved]
